FAERS Safety Report 25357289 (Version 2)
Quarter: 2025Q2

REPORT INFORMATION
  Report Type: Spontaneous
  Country: US (occurrence: US)
  Receive Date: 20250526
  Receipt Date: 20250618
  Transmission Date: 20250716
  Serious: Yes (Hospitalization)
  Sender: RIGEL PHARMACEUTICALS
  Company Number: US-Rigel-Pharmaceutical-INC-20250500087

PATIENT
  Age: 75 Year
  Sex: Male
  Weight: 74.802 kg

DRUGS (1)
  1. REZLIDHIA [Suspect]
     Active Substance: OLUTASIDENIB
     Indication: Acute myeloid leukaemia
     Dosage: 150 MG, BID
     Route: 048
     Dates: start: 20240502

REACTIONS (4)
  - Chest pain [Unknown]
  - Hospitalisation [Unknown]
  - Product dose omission issue [Unknown]
  - Constipation [Unknown]

NARRATIVE: CASE EVENT DATE: 20250501
